FAERS Safety Report 24113872 (Version 1)
Quarter: 2024Q3

REPORT INFORMATION
  Report Type: Spontaneous
  Country: CA (occurrence: CA)
  Receive Date: 20240720
  Receipt Date: 20240720
  Transmission Date: 20241016
  Serious: Yes (Other)
  Sender: CELLTRION
  Company Number: CA-CELLTRION INC.-2024CA016838

PATIENT

DRUGS (1)
  1. TRASTUZUMAB [Suspect]
     Active Substance: TRASTUZUMAB
     Indication: HER2 positive breast cancer
     Dosage: 489 MG, 1 EVERY 3 WEEKS
     Route: 042

REACTIONS (2)
  - Balance disorder [Unknown]
  - Leukoencephalopathy [Unknown]
